FAERS Safety Report 7866934-0 (Version None)
Quarter: 2011Q4

REPORT INFORMATION
  Report Type: 
  Country: None (occurrence: None)
  Receive Date: 20111026
  Receipt Date: 20110920
  Transmission Date: 20120403
  Serious: Yes (Life-Threatening)
  Sender: FDA-Public Use
  Company Number: US-2011-10766

PATIENT
  Age: 45 Year
  Sex: Male

DRUGS (2)
  1. BUSULFAN [Suspect]
     Indication: BONE MARROW CONDITIONING REGIMEN
     Dosage: 6 MG/ML, QD, INTRAVENOUS
     Route: 042
     Dates: start: 20090317, end: 20090320
  2. ALKERAN [Concomitant]

REACTIONS (1)
  - SEPTIC SHOCK [None]
